FAERS Safety Report 20635203 (Version 1)
Quarter: 2022Q1

REPORT INFORMATION
  Report Type: Spontaneous
  Country: CA (occurrence: CA)
  Receive Date: 20220325
  Receipt Date: 20220325
  Transmission Date: 20220423
  Serious: Yes (Other)
  Sender: FDA-Public Use
  Company Number: CA-SA-SAC20220318000286

PATIENT
  Age: 69 Year
  Sex: Male

DRUGS (2)
  1. CLOPIDOGREL BISULFATE [Suspect]
     Active Substance: CLOPIDOGREL BISULFATE
     Dosage: UNK
  2. IMBRUVICA [Suspect]
     Active Substance: IBRUTINIB
     Dosage: 520 MG, 5 EVERY 1 DAYS
     Route: 048

REACTIONS (6)
  - Haemorrhage [Unknown]
  - Stress [Unknown]
  - Cardiac disorder [Unknown]
  - Drug interaction [Unknown]
  - Incorrect dose administered [Unknown]
  - Off label use [Unknown]
